FAERS Safety Report 14911599 (Version 1)
Quarter: 2018Q2

REPORT INFORMATION
  Report Type: Spontaneous
  Country: CA (occurrence: CA)
  Receive Date: 20180518
  Receipt Date: 20180518
  Transmission Date: 20180711
  Serious: Yes (Hospitalization)
  Sender: FDA-Public Use
  Company Number: CA-TEVA-2018-CA-893614

PATIENT
  Age: 67 Year
  Sex: Male
  Weight: 115.77 kg

DRUGS (4)
  1. TAMSULOSIN CR [Concomitant]
     Active Substance: TAMSULOSIN
  2. TEVA-VENLAFAXINE XR [Suspect]
     Active Substance: VENLAFAXINE HYDROCHLORIDE
     Indication: MAJOR DEPRESSION
     Route: 048
  3. VITAMINS [Concomitant]
     Active Substance: VITAMINS
  4. BUPROPION. [Concomitant]
     Active Substance: BUPROPION

REACTIONS (2)
  - Bladder catheterisation [Recovering/Resolving]
  - Urinary retention [Recovering/Resolving]
